FAERS Safety Report 15795675 (Version 1)
Quarter: 2019Q1

REPORT INFORMATION
  Report Type: Spontaneous
  Country: CA (occurrence: CA)
  Receive Date: 20190107
  Receipt Date: 20190107
  Transmission Date: 20190417
  Serious: Yes (Hospitalization)
  Sender: FDA-Public Use
  Company Number: CA-HLSUS-2018-CA-002003

PATIENT
  Age: 57 Year
  Sex: Male
  Weight: 103 kg

DRUGS (18)
  1. CLOZAPINE. [Suspect]
     Active Substance: CLOZAPINE
     Indication: SCHIZOPHRENIA
     Dosage: UNKNOWN
     Route: 048
  2. NOVORAPID [Concomitant]
     Active Substance: INSULIN ASPART
  3. DIVALPROEX SODIUM. [Concomitant]
     Active Substance: DIVALPROEX SODIUM
  4. SENNA [Concomitant]
     Active Substance: SENNA LEAF\SENNOSIDES\SENNOSIDES A AND B
  5. VITAMIN D [Concomitant]
     Active Substance: CHOLECALCIFEROL
  6. FLUTICASONE. [Concomitant]
     Active Substance: FLUTICASONE
  7. LITHIUM. [Concomitant]
     Active Substance: LITHIUM
  8. PERINDOPRIL [Concomitant]
     Active Substance: PERINDOPRIL
  9. LACTULOSE SYRUP [Concomitant]
  10. NICOTINE. [Concomitant]
     Active Substance: NICOTINE
  11. RANITIDINE. [Concomitant]
     Active Substance: RANITIDINE
  12. ATORVASTATIN CALCIUM. [Concomitant]
     Active Substance: ATORVASTATIN CALCIUM
  13. ZUCLOPENTHIXOL DECANOATE [Concomitant]
     Active Substance: ZUCLOPENTHIXOL DECANOATE
  14. NOVOMIX 30 [Concomitant]
     Active Substance: INSULIN ASPART
  15. PANTOPRAZOLE [Concomitant]
     Active Substance: PANTOPRAZOLE
  16. SPIRIVA [Concomitant]
     Active Substance: TIOTROPIUM BROMIDE MONOHYDRATE
  17. METFORMIN [Concomitant]
     Active Substance: METFORMIN HYDROCHLORIDE
  18. ASPIRIN. [Concomitant]
     Active Substance: ASPIRIN

REACTIONS (14)
  - Nausea [Recovering/Resolving]
  - Vomiting [Recovering/Resolving]
  - Heart rate abnormal [Recovering/Resolving]
  - Gastrointestinal sounds abnormal [Recovering/Resolving]
  - Abdominal distension [Recovering/Resolving]
  - Blood creatine increased [Recovering/Resolving]
  - Glomerular filtration rate abnormal [Recovering/Resolving]
  - Blood pressure abnormal [Recovering/Resolving]
  - Haemoglobin decreased [Recovering/Resolving]
  - White blood cell count increased [Recovering/Resolving]
  - Drug level above therapeutic [Recovering/Resolving]
  - Constipation [Recovering/Resolving]
  - Intestinal obstruction [Recovering/Resolving]
  - Scan abdomen abnormal [Recovering/Resolving]
